FAERS Safety Report 5143978-3 (Version None)
Quarter: 2006Q4

REPORT INFORMATION
  Report Type: 
  Country: None (occurrence: None)
  Receive Date: 20061030
  Receipt Date: 20061002
  Transmission Date: 20070319
  Serious: Yes (Death, Hospitalization)
  Sender: FDA-Public Use
  Company Number: 2006001898

PATIENT
  Age: 69 Year
  Sex: Male

DRUGS (1)
  1. ERLOTINIB (TABLET) [Suspect]
     Indication: PROSTATE CANCER
     Dosage: 150 MG (QD), ORAL
     Route: 048
     Dates: start: 20060724, end: 20060906

REACTIONS (3)
  - DEHYDRATION [None]
  - HYPOTENSION [None]
  - TREMOR [None]
